FAERS Safety Report 8874258 (Version 13)
Quarter: 2015Q2

REPORT INFORMATION
  Report Type: Spontaneous
  Country: IT (occurrence: IT)
  Receive Date: 20121031
  Receipt Date: 20150609
  Transmission Date: 20150821
  Serious: Yes (Hospitalization)
  Sender: FDA-Public Use
  Company Number: IT-BIOGENIDEC-2012BI042075

PATIENT
  Age: 43 Year
  Sex: Female
  Weight: 65 kg

DRUGS (1)
  1. TYSABRI [Suspect]
     Active Substance: NATALIZUMAB
     Indication: MULTIPLE SCLEROSIS
     Route: 042
     Dates: start: 20101102, end: 20120911

REACTIONS (3)
  - Progressive multifocal leukoencephalopathy [Recovered/Resolved]
  - Immune reconstitution inflammatory syndrome [Recovered/Resolved]
  - Cognitive disorder [Not Recovered/Not Resolved]

NARRATIVE: CASE EVENT DATE: 20120601
